FAERS Safety Report 5002946-2 (Version None)
Quarter: 2006Q2

REPORT INFORMATION
  Report Type: 
  Country: None (occurrence: None)
  Receive Date: 20060516
  Receipt Date: 20060424
  Transmission Date: 20061013
  Serious: Yes (Other)
  Sender: FDA-Public Use
  Company Number: JP-JPN-A200601346

PATIENT
  Age: 30 Year
  Sex: Female
  Weight: 66 kg

DRUGS (2)
  1. PAXIL [Suspect]
     Indication: PANIC DISORDER
     Dosage: 20MG PER DAY
     Route: 048
     Dates: start: 20060417, end: 20060417
  2. SOLANAX [Concomitant]
     Indication: ANXIETY
     Route: 048

REACTIONS (17)
  - CHILLS [None]
  - CRYING [None]
  - DIARRHOEA [None]
  - EXCITABILITY [None]
  - FEELING ABNORMAL [None]
  - FEELING HOT AND COLD [None]
  - GAIT DISTURBANCE [None]
  - INSOMNIA [None]
  - IRRITABILITY [None]
  - MALAISE [None]
  - MENTAL DISORDER [None]
  - NAUSEA [None]
  - PALPITATIONS [None]
  - POLLAKIURIA [None]
  - PYREXIA [None]
  - SEROTONIN SYNDROME [None]
  - TREMOR [None]
